FAERS Safety Report 19577718 (Version 2)
Quarter: 2022Q2

REPORT INFORMATION
  Report Type: Spontaneous
  Country: US (occurrence: US)
  Receive Date: 20210719
  Receipt Date: 20220425
  Transmission Date: 20220721
  Serious: No
  Sender: FDA-Public Use
  Company Number: US-PFIZER INC-2020027761

PATIENT
  Age: 79 Year
  Sex: Male

DRUGS (5)
  1. LYRICA [Suspect]
     Active Substance: PREGABALIN
     Indication: Polyneuropathy idiopathic progressive
     Dosage: 150 MG, 4X/DAY
     Route: 048
  2. LYRICA [Suspect]
     Active Substance: PREGABALIN
     Indication: Paraesthesia
  3. LYRICA [Suspect]
     Active Substance: PREGABALIN
     Indication: Neuropathy peripheral
  4. LYRICA [Suspect]
     Active Substance: PREGABALIN
     Indication: Radiculopathy
  5. LYRICA [Suspect]
     Active Substance: PREGABALIN
     Indication: Sciatica

REACTIONS (4)
  - Stress [Unknown]
  - Anxiety [Unknown]
  - Gait inability [Unknown]
  - Loss of personal independence in daily activities [Unknown]
